FAERS Safety Report 12203355 (Version 2)
Quarter: 2016Q2

REPORT INFORMATION
  Report Type: Report from Study
  Country: CA (occurrence: CA)
  Receive Date: 20160323
  Receipt Date: 20160405
  Transmission Date: 20160815
  Serious: Yes (Other)
  Sender: FDA-Public Use
  Company Number: CA-ROCHE-1708290

PATIENT
  Age: 70 Year
  Sex: Female

DRUGS (12)
  1. VALACYCLOVIR [Concomitant]
     Active Substance: VALACYCLOVIR HYDROCHLORIDE
     Dosage: SHINGLES PREVENTION
     Route: 065
  2. PREDNISONE. [Concomitant]
     Active Substance: PREDNISONE
  3. INNOHEP [Concomitant]
     Active Substance: TINZAPARIN SODIUM
  4. RITUXAN [Suspect]
     Active Substance: RITUXIMAB
     Indication: CHRONIC LYMPHOCYTIC LEUKAEMIA
     Route: 042
     Dates: start: 201003
  5. URSODIOL. [Concomitant]
     Active Substance: URSODIOL
     Dosage: FOR LIVER
     Route: 065
  6. AMLODIPINE [Concomitant]
     Active Substance: AMLODIPINE BESYLATE
  7. SEPTRA DS [Concomitant]
     Active Substance: SULFAMETHOXAZOLE\TRIMETHOPRIM
  8. RITUXAN [Suspect]
     Active Substance: RITUXIMAB
     Route: 042
     Dates: start: 201201
  9. FLUCONAZOLE. [Concomitant]
     Active Substance: FLUCONAZOLE
  10. RITUXAN [Suspect]
     Active Substance: RITUXIMAB
     Dosage: (FIRST RPAP DOSE)
     Route: 042
     Dates: start: 20160323
  11. ZOLEDRONIC ACID [Concomitant]
     Active Substance: ZOLEDRONIC ACID
     Dosage: FOR BONE
     Route: 065
  12. PULMICORT TURBUHALER [Concomitant]
     Active Substance: BUDESONIDE

REACTIONS (11)
  - Chronic lymphocytic leukaemia recurrent [Unknown]
  - Haemorrhage [Unknown]
  - Pain [Unknown]
  - Discomfort [Not Recovered/Not Resolved]
  - Compression fracture [Not Recovered/Not Resolved]
  - Fall [Unknown]
  - Oxygen saturation decreased [Unknown]
  - Blood pressure increased [Unknown]
  - Graft versus host disease [Unknown]
  - Musculoskeletal stiffness [Unknown]
  - Back pain [Not Recovered/Not Resolved]

NARRATIVE: CASE EVENT DATE: 201409
